FAERS Safety Report 9475225 (Version 1)
Quarter: 2013Q3

REPORT INFORMATION
  Report Type: Spontaneous
  Country: US (occurrence: None)
  Receive Date: 20130822
  Receipt Date: 20130822
  Transmission Date: 20140515
  Serious: No
  Sender: FDA-Public Use
  Company Number: None

PATIENT
  Sex: Female

DRUGS (11)
  1. CYMBALTA (DULOXETINE HYDROCHLORIDE) [Suspect]
     Indication: DEPRESSION
     Route: 048
  2. CYMBALTA (DULOXETINE HYDROCHLORIDE) [Suspect]
     Indication: ANXIETY
     Route: 048
  3. CYMBALTA (DULOXETINE HYDROCHLORIDE) [Suspect]
     Indication: BACK PAIN
     Route: 048
  4. ZOLOFT [Concomitant]
  5. XANAX [Concomitant]
  6. ZOLPIDIEM [Concomitant]
  7. CLONIDINE [Concomitant]
  8. SPIRONOLACTONE LASIX [Concomitant]
  9. CALCIUM [Concomitant]
  10. MULTIVITAMIN [Concomitant]
  11. VITAMIN D [Concomitant]

REACTIONS (11)
  - Hypertension [None]
  - Anxiety [None]
  - Cardiac murmur [None]
  - Eating disorder [None]
  - Sleep disorder [None]
  - Anosmia [None]
  - Ageusia [None]
  - Tremor [None]
  - Condition aggravated [None]
  - Feeling abnormal [None]
  - Back pain [None]
